FAERS Safety Report 10711767 (Version 5)
Quarter: 2015Q4

REPORT INFORMATION
  Report Type: Spontaneous
  Country: US (occurrence: US)
  Receive Date: 20150114
  Receipt Date: 20151211
  Transmission Date: 20160304
  Serious: Yes (Hospitalization, Other)
  Sender: FDA-Public Use
  Company Number: US-GLAXOSMITHKLINE-US2014GSK047012

PATIENT
  Sex: Male

DRUGS (12)
  1. ADVAIR HFA [Suspect]
     Active Substance: FLUTICASONE PROPIONATE\SALMETEROL XINAFOATE
     Dosage: 1 PUFF(S), BID
     Route: 055
     Dates: start: 2002
  2. AZOPT [Concomitant]
     Active Substance: BRINZOLAMIDE
  3. SIMVASTATIN. [Concomitant]
     Active Substance: SIMVASTATIN
  4. ADVAIR HFA [Suspect]
     Active Substance: FLUTICASONE PROPIONATE\SALMETEROL XINAFOATE
     Indication: EMPHYSEMA
     Dosage: UNK, U
     Route: 055
     Dates: start: 2002
  5. LISINOPRIL. [Concomitant]
     Active Substance: LISINOPRIL
  6. AMITRIPTYLINE [Concomitant]
     Active Substance: AMITRIPTYLINE
  7. ADVAIR HFA [Suspect]
     Active Substance: FLUTICASONE PROPIONATE\SALMETEROL XINAFOATE
     Indication: CHRONIC OBSTRUCTIVE PULMONARY DISEASE
     Dosage: UNK
  8. FUROSEMIDE. [Concomitant]
     Active Substance: FUROSEMIDE
  9. LUMIGAN [Concomitant]
     Active Substance: BIMATOPROST
  10. ASPIRIN. [Concomitant]
     Active Substance: ASPIRIN
  11. METOPROLOL [Concomitant]
     Active Substance: METOPROLOL
  12. OXYCODONE [Concomitant]
     Active Substance: OXYCODONE

REACTIONS (6)
  - Skin mass [Unknown]
  - Diabetes mellitus [Not Recovered/Not Resolved]
  - Infected cyst [Unknown]
  - Glaucoma [Unknown]
  - Erythema [Unknown]
  - Blood pressure abnormal [Unknown]

NARRATIVE: CASE EVENT DATE: 2009
